FAERS Safety Report 7372429-3 (Version None)
Quarter: 2011Q1

REPORT INFORMATION
  Report Type: 
  Country: None (occurrence: None)
  Receive Date: 20110324
  Receipt Date: 20110315
  Transmission Date: 20110831
  Serious: Yes (Hospitalization)
  Sender: FDA-Public Use
  Company Number: DE-SANOFI-AVENTIS-2011SA015622

PATIENT
  Age: 60 Year
  Sex: Female

DRUGS (7)
  1. OXALIPLATIN [Suspect]
     Route: 041
     Dates: start: 20100309, end: 20100309
  2. OXALIPLATIN [Suspect]
     Route: 041
     Dates: start: 20100323, end: 20100323
  3. BEVACIZUMAB [Suspect]
     Route: 041
     Dates: start: 20100309, end: 20100309
  4. FLUOROURACIL [Suspect]
     Route: 041
     Dates: start: 20100309, end: 20100309
  5. BEVACIZUMAB [Suspect]
     Route: 041
     Dates: start: 20100323, end: 20100323
  6. FOLINIC ACID [Suspect]
     Route: 041
     Dates: start: 20100309, end: 20100309
  7. RAMIPRIL [Concomitant]

REACTIONS (1)
  - CIRCULATORY COLLAPSE [None]
